FAERS Safety Report 17144736 (Version 1)
Quarter: 2019Q4

REPORT INFORMATION
  Report Type: Spontaneous
  Country: US (occurrence: US)
  Receive Date: 20191212
  Receipt Date: 20191212
  Transmission Date: 20200122
  Serious: No
  Sender: FDA-Public Use
  Company Number: US-NOVEN PHARMACEUTICALS, INC.-US2019000159

PATIENT

DRUGS (6)
  1. MINIVELLE [Suspect]
     Active Substance: ESTRADIOL
     Indication: HOT FLUSH
     Dosage: 0.0375 MG, 2/WK ON TUESDAY AND FRIDAY
     Route: 062
     Dates: start: 2016
  2. LEVOTHROID [Concomitant]
     Active Substance: LEVOTHYROXINE SODIUM
     Indication: HYPERTHYROIDISM
     Dosage: 88 ?G, UNK
  3. MINIVELLE [Suspect]
     Active Substance: ESTRADIOL
     Dosage: 0.05 MG, 2/WK ON TUESDAY AND FRIDAY
     Route: 062
     Dates: start: 2018, end: 2018
  4. LISINOPRIL. [Concomitant]
     Active Substance: LISINOPRIL
     Indication: HYPERTENSION
     Dosage: 20 MG, UNK
  5. MINIVELLE [Suspect]
     Active Substance: ESTRADIOL
     Dosage: 0.1 MG, 2/WK ON TUESDAY AND FRIDAY
     Route: 062
     Dates: start: 2018
  6. MINIVELLE [Suspect]
     Active Substance: ESTRADIOL
     Dosage: 0.075 MG, 2/WK ON TUESDAY AND FRIDAY
     Route: 062

REACTIONS (8)
  - Therapy cessation [Recovered/Resolved]
  - Product adhesion issue [Not Recovered/Not Resolved]
  - Hot flush [Recovering/Resolving]
  - Blood oestrogen decreased [Unknown]
  - Alopecia [Recovering/Resolving]
  - Ill-defined disorder [Unknown]
  - Underdose [Unknown]
  - Fatigue [Recovering/Resolving]

NARRATIVE: CASE EVENT DATE: 2018
